FAERS Safety Report 21415456 (Version 1)
Quarter: 2022Q4

REPORT INFORMATION
  Report Type: Spontaneous
  Country: US (occurrence: US)
  Receive Date: 20221006
  Receipt Date: 20221006
  Transmission Date: 20230113
  Serious: No
  Sender: FDA-Public Use
  Company Number: US-GLENMARK PHARMACEUTICALS-2022GMK072799

PATIENT

DRUGS (1)
  1. ASPIRIN\DIPYRIDAMOLE [Suspect]
     Active Substance: ASPIRIN\DIPYRIDAMOLE
     Indication: Anticoagulant therapy
     Dosage: UNK UNK, BID (ONE IN THE MORNING AND EVENING)
     Route: 065

REACTIONS (3)
  - Product storage error [Unknown]
  - Product physical issue [Unknown]
  - Product commingling [Unknown]

NARRATIVE: CASE EVENT DATE: 20210101
